FAERS Safety Report 21550932 (Version 1)
Quarter: 2022Q4

REPORT INFORMATION
  Report Type: Spontaneous
  Country: PL (occurrence: PL)
  Receive Date: 20221103
  Receipt Date: 20221103
  Transmission Date: 20230112
  Serious: Yes (Other)
  Sender: FDA-Public Use
  Company Number: PL-THERAPEUTICSMD-2022TMD00940

PATIENT
  Age: 53 Year
  Sex: Female

DRUGS (3)
  1. BIJUVA [Suspect]
     Active Substance: ESTRADIOL\PROGESTERONE
     Indication: Hormone replacement therapy
     Dosage: 1 CAPSULES, 1X/DAY
     Route: 048
     Dates: start: 202206, end: 202209
  2. VENLAFAXINE [Concomitant]
     Active Substance: VENLAFAXINE HYDROCHLORIDE
  3. KETREL [Concomitant]

REACTIONS (2)
  - Hemiparesis [Unknown]
  - Thrombosis [Unknown]

NARRATIVE: CASE EVENT DATE: 20220901
